FAERS Safety Report 9556840 (Version 8)
Quarter: 2014Q1

REPORT INFORMATION
  Report Type: Spontaneous
  Country: US (occurrence: US)
  Receive Date: 20130926
  Receipt Date: 20140306
  Transmission Date: 20141002
  Serious: No
  Sender: FDA-Public Use
  Company Number: US-PFIZER INC-2013275957

PATIENT
  Age: 62 Year
  Sex: Female
  Weight: 50.79 kg

DRUGS (11)
  1. SUTENT [Suspect]
     Indication: RENAL CANCER
     Dosage: 50 MG, CYCLIC (DAILY, 4 WEEKS ON, 2 WEEKS OFF)
     Route: 048
     Dates: start: 20130826
  2. SUTENT [Suspect]
     Dosage: UNK
     Dates: end: 20140124
  3. LIPITOR [Concomitant]
     Dosage: 40 MG, DAILY
  4. NEURONTIN [Concomitant]
     Dosage: 300 MG, 3X/DAY
  5. PLAVIX [Concomitant]
     Indication: CARDIAC DISORDER
     Dosage: 75 MG, DAILY
  6. BENICAR [Concomitant]
     Dosage: 10 MG, DAILY
  7. BABY ASPIRIN [Concomitant]
     Dosage: 81 MG, DAILY
  8. METFORMIN [Concomitant]
     Dosage: 500 MG, DAILY
  9. AMBIEN [Concomitant]
     Dosage: 10 MG, AS NEEDED (NIGHTLY)
  10. ZOFRAN [Concomitant]
     Dosage: UNK
  11. SANCUSO [Concomitant]
     Dosage: UNK

REACTIONS (31)
  - Diarrhoea [Recovered/Resolved]
  - Skin exfoliation [Recovering/Resolving]
  - Fatigue [Unknown]
  - Back pain [Unknown]
  - Headache [Unknown]
  - Paraesthesia [Unknown]
  - Pain in extremity [Unknown]
  - Flatulence [Unknown]
  - Abdominal distension [Unknown]
  - Weight decreased [Recovering/Resolving]
  - Decreased appetite [Recovering/Resolving]
  - Productive cough [Unknown]
  - Nausea [Recovered/Resolved]
  - Feeling cold [Unknown]
  - Vomiting [Recovered/Resolved]
  - Blood glucose increased [Recovered/Resolved]
  - Blood pressure increased [Unknown]
  - Epistaxis [Recovering/Resolving]
  - Retching [Recovered/Resolved]
  - Blood sodium decreased [Unknown]
  - Body temperature decreased [Unknown]
  - Gastrointestinal motility disorder [Unknown]
  - Eyelid oedema [Unknown]
  - Neck pain [Unknown]
  - Asthenia [Unknown]
  - Muscle spasms [Unknown]
  - Emotional disorder [Unknown]
  - Depression [Recovering/Resolving]
  - Aneurysm [Unknown]
  - Constipation [Recovered/Resolved]
  - Dry skin [Not Recovered/Not Resolved]
